FAERS Safety Report 8348566-3 (Version None)
Quarter: 2012Q2

REPORT INFORMATION
  Report Type: 
  Country: None (occurrence: None)
  Receive Date: 20120510
  Receipt Date: 20120428
  Transmission Date: 20120825
  Serious: Yes (Hospitalization, Other)
  Sender: FDA-Public Use
  Company Number: CN-BRISTOL-MYERS SQUIBB COMPANY-16559650

PATIENT
  Age: 53 Year
  Sex: Female

DRUGS (2)
  1. METOPROLOL TARTRATE [Suspect]
     Indication: ARRHYTHMIA
     Dosage: 1 DF = 0.5TAB
     Route: 048
     Dates: start: 20111101
  2. IRBESARTAN [Suspect]
     Indication: HYPERTENSION
     Dosage: 2007-SEP11=150MG,NOV11-12APR12=75MG,13APR12 150MG
     Route: 048
     Dates: start: 20070101

REACTIONS (3)
  - CUSHING'S SYNDROME [None]
  - DIZZINESS [None]
  - BLOOD PRESSURE INCREASED [None]
